FAERS Safety Report 18265977 (Version 1)
Quarter: 2020Q3

REPORT INFORMATION
  Report Type: Spontaneous
  Country: CA (occurrence: CA)
  Receive Date: 20200915
  Receipt Date: 20200915
  Transmission Date: 20201103
  Serious: Yes (Congenital Anomaly, Other)
  Sender: FDA-Public Use
  Company Number: CA-AUROBINDO-AUR-APL-2020-047645

PATIENT
  Sex: Male

DRUGS (2)
  1. CEPHALEXIN. [Suspect]
     Active Substance: CEPHALEXIN
     Indication: URINARY TRACT INFECTION ENTEROCOCCAL
     Dosage: UNK
     Route: 064
  2. CEPHALEXIN. [Suspect]
     Active Substance: CEPHALEXIN
     Indication: ESCHERICHIA URINARY TRACT INFECTION

REACTIONS (2)
  - Foetal exposure during pregnancy [Recovered/Resolved]
  - Congenital cyst [Recovered/Resolved]
